FAERS Safety Report 7264532-3 (Version None)
Quarter: 2011Q1

REPORT INFORMATION
  Report Type: 
  Country: None (occurrence: None)
  Receive Date: 20110131
  Receipt Date: 20110127
  Transmission Date: 20110831
  Serious: No
  Sender: FDA-Public Use
  Company Number: US-PFIZER INC-2011020297

PATIENT
  Sex: Male
  Weight: 97.506 kg

DRUGS (2)
  1. FLUCONAZOLE [Suspect]
     Indication: SYSTEMIC CANDIDA
     Dosage: 100 MG, DAILY
     Route: 048
     Dates: start: 20110122
  2. MULTI-VITAMINS [Concomitant]
     Dosage: UNK
     Dates: end: 20110126

REACTIONS (1)
  - HEADACHE [None]
